FAERS Safety Report 24143266 (Version 2)
Quarter: 2025Q2

REPORT INFORMATION
  Report Type: Spontaneous
  Country: US (occurrence: US)
  Receive Date: 20240726
  Receipt Date: 20250512
  Transmission Date: 20250717
  Serious: No
  Sender: MERCK SHARP & DOHME LLC
  Company Number: None

PATIENT
  Sex: Female
  Weight: 72.6 kg

DRUGS (13)
  1. WINREVAIR [Suspect]
     Active Substance: SOTATERCEPT-CSRK
     Indication: Product used for unknown indication
  2. WINREVAIR [Suspect]
     Active Substance: SOTATERCEPT-CSRK
  3. WINREVAIR [Suspect]
     Active Substance: SOTATERCEPT-CSRK
  4. WINREVAIR [Suspect]
     Active Substance: SOTATERCEPT-CSRK
  5. ORENITRAM [Suspect]
     Active Substance: TREPROSTINIL
     Indication: Pulmonary arterial hypertension
     Dosage: DOSE DESCRIPTION : 1 MILLIGRAM, TID?DAILY DOSE : 3 MILLIGRAM
     Route: 048
     Dates: start: 20220519
  6. ORENITRAM [Suspect]
     Active Substance: TREPROSTINIL
     Indication: Pulmonary arterial hypertension
     Dosage: DOSE DESCRIPTION : 0.125 MILLIGRAM, TID?DAILY DOSE : 0.375 MILLIGRAM
     Route: 048
  7. ORENITRAM [Suspect]
     Active Substance: TREPROSTINIL
     Indication: Pulmonary arterial hypertension
     Dosage: DOSE DESCRIPTION : 0.25 MILLIGRAM, TID?DAILY DOSE : 0.75 MILLIGRAM
     Route: 048
  8. SILDENAFIL CITRATE [Concomitant]
     Active Substance: SILDENAFIL CITRATE
  9. SPIRONOLACTONE [Concomitant]
     Active Substance: SPIRONOLACTONE
  10. DIGOXIN [Concomitant]
     Active Substance: DIGOXIN
  11. FUROSEMIDE [Concomitant]
     Active Substance: FUROSEMIDE
  12. AMBRISENTAN [Concomitant]
     Active Substance: AMBRISENTAN
  13. OXYGEN [Concomitant]
     Active Substance: OXYGEN

REACTIONS (2)
  - Migraine [Unknown]
  - Product dose omission issue [Unknown]
